FAERS Safety Report 10442685 (Version 1)
Quarter: 2014Q3

REPORT INFORMATION
  Report Type: Spontaneous
  Country: BE (occurrence: BE)
  Receive Date: 20140909
  Receipt Date: 20140909
  Transmission Date: 20150326
  Serious: Yes (Other)
  Sender: FDA-Public Use
  Company Number: PHHY2014BE109885

PATIENT
  Age: 22 Year
  Sex: Female

DRUGS (11)
  1. HEPARIN [Suspect]
     Active Substance: HEPARIN SODIUM
     Indication: SUSAC^S SYNDROME
  2. CYCLOPHOSPHAMIDE. [Suspect]
     Active Substance: CYCLOPHOSPHAMIDE
     Indication: SUSAC^S SYNDROME
     Route: 042
  3. CICLOSPORIN [Suspect]
     Active Substance: CYCLOSPORINE
     Indication: SUSAC^S SYNDROME
     Route: 048
  4. AMPICILLIN SODIUM SALT, AMPICILLIN TRIHYDRATE [Suspect]
     Active Substance: AMPICILLIN SODIUM\AMPICILLIN TRIHYDRATE
     Indication: SUSAC^S SYNDROME
  5. METHYLPREDNISOLONE [Suspect]
     Active Substance: METHYLPREDNISOLONE
     Dosage: 64 MG, PERDAY
     Route: 048
  6. ASPIRIN. [Concomitant]
     Active Substance: ASPIRIN
  7. METHYLPREDNISOLONE [Suspect]
     Active Substance: METHYLPREDNISOLONE
     Indication: SUSAC^S SYNDROME
     Dosage: 1 G, PERDAY
     Route: 042
  8. METHYLPREDNISOLONE [Suspect]
     Active Substance: METHYLPREDNISOLONE
     Route: 042
  9. ACYCLOVIR. [Suspect]
     Active Substance: ACYCLOVIR
     Indication: SUSAC^S SYNDROME
  10. CEFTRIAXONE. [Suspect]
     Active Substance: CEFTRIAXONE
     Indication: SUSAC^S SYNDROME
  11. INFLIXIMAB [Suspect]
     Active Substance: INFLIXIMAB
     Indication: SUSAC^S SYNDROME
     Route: 042

REACTIONS (7)
  - Headache [Unknown]
  - Susac^s syndrome [Unknown]
  - Visual impairment [Unknown]
  - Ischaemia [Unknown]
  - Dysarthria [Unknown]
  - Blindness [Unknown]
  - Muscular weakness [Unknown]
